FAERS Safety Report 17419546 (Version 1)
Quarter: 2020Q1

REPORT INFORMATION
  Report Type: Spontaneous
  Country: NL (occurrence: PT)
  Receive Date: 20200214
  Receipt Date: 20200214
  Transmission Date: 20200409
  Serious: Yes (Other)
  Sender: FDA-Public Use
  Company Number: PT-FRESENIUS KABI-FK202001308

PATIENT
  Age: 34 Year
  Sex: Female

DRUGS (2)
  1. CARBOPLATIN (MANUFACTURER UNKNOWN) [Suspect]
     Active Substance: CARBOPLATIN
     Indication: PRODUCT USED FOR UNKNOWN INDICATION
     Route: 042
     Dates: end: 20180426
  2. PACLITAXEL. [Concomitant]
     Active Substance: PACLITAXEL
     Indication: PRODUCT USED FOR UNKNOWN INDICATION
     Route: 065

REACTIONS (5)
  - Pruritus [Recovered/Resolved]
  - Erythema [Recovered/Resolved]
  - Dysphagia [Recovered/Resolved]
  - Cough [Recovered/Resolved]
  - Palmar erythema [Recovered/Resolved]

NARRATIVE: CASE EVENT DATE: 20180426
